FAERS Safety Report 17693930 (Version 2)
Quarter: 2020Q2

REPORT INFORMATION
  Report Type: Spontaneous
  Country: GB (occurrence: GB)
  Receive Date: 20200422
  Receipt Date: 20200504
  Transmission Date: 20200714
  Serious: Yes (Death, Other)
  Sender: FDA-Public Use
  Company Number: NVSC2020GB012824

PATIENT
  Age: 52 Year
  Sex: Male

DRUGS (10)
  1. CARBOPLATIN. [Suspect]
     Active Substance: CARBOPLATIN
     Indication: B-CELL LYMPHOMA
     Dosage: UNK, (PART OF RICE CHEMOTHERAPY)
     Route: 065
  2. CYCLOPHOSPHAMIDE. [Suspect]
     Active Substance: CYCLOPHOSPHAMIDE
     Indication: DIFFUSE LARGE B-CELL LYMPHOMA
     Dosage: UNK, (PART OF R-CHOP REGIMEN)
     Route: 065
  3. VINCRISTINE [Suspect]
     Active Substance: VINCRISTINE
     Indication: DIFFUSE LARGE B-CELL LYMPHOMA
     Dosage: UNK, (PART OF DA-EPOCH-R REGIMEN)
     Route: 065
  4. METHOTREXATE. [Suspect]
     Active Substance: METHOTREXATE
     Indication: LYMPHOMA
     Dosage: UNK
     Route: 037
  5. DOXORUBICIN [Suspect]
     Active Substance: DOXORUBICIN
     Indication: DIFFUSE LARGE B-CELL LYMPHOMA
     Dosage: UNK, (PART OF DA-EPOCH-R REGIMEN
     Route: 065
  6. PREDNISOLONE. [Suspect]
     Active Substance: PREDNISOLONE
     Indication: DIFFUSE LARGE B-CELL LYMPHOMA
     Dosage: 70 MG
     Route: 048
  7. ETOPOSIDE. [Suspect]
     Active Substance: ETOPOSIDE
     Indication: B-CELL LYMPHOMA
     Dosage: UNK, (PART OF DA-EPOCH-R REGIMEN)
     Route: 065
  8. PREDNISONE. [Suspect]
     Active Substance: PREDNISONE
     Indication: B-CELL LYMPHOMA
     Dosage: UNK, (PART OF R-CHOP REGIMEN)
     Route: 065
  9. IFOSFAMIDE. [Suspect]
     Active Substance: IFOSFAMIDE
     Indication: B-CELL LYMPHOMA
     Dosage: UNK, (PART OF RICE CHEMOTHERAPY)
     Route: 065
  10. RITUXIMAB. [Suspect]
     Active Substance: RITUXIMAB
     Indication: DIFFUSE LARGE B-CELL LYMPHOMA
     Dosage: UNK, (PART OF DA-EPOCH-R REGIMEN)
     Route: 065

REACTIONS (7)
  - Vomiting [Fatal]
  - Therapeutic response decreased [Fatal]
  - Disease progression [Fatal]
  - Off label use [Unknown]
  - Drug ineffective [Fatal]
  - Diffuse large B-cell lymphoma [Unknown]
  - Malignant neoplasm progression [Unknown]
